FAERS Safety Report 23585690 (Version 1)
Quarter: 2024Q1

REPORT INFORMATION
  Report Type: Spontaneous
  Country: US (occurrence: US)
  Receive Date: 20240301
  Receipt Date: 20240301
  Transmission Date: 20240410
  Serious: No
  Sender: FDA-Public Use
  Company Number: US-BRISTOL-MYERS SQUIBB COMPANY-2024-033418

PATIENT
  Age: 63 Year
  Sex: Female

DRUGS (1)
  1. ORENCIA [Suspect]
     Active Substance: ABATACEPT
     Indication: Rheumatoid arthritis
     Dosage: WEEK 0, 2 , 4, THEN EVERY 4 WEEKS THEREAFTER
     Route: 042
     Dates: start: 202402

REACTIONS (3)
  - Pain [Unknown]
  - Musculoskeletal discomfort [Unknown]
  - Feeling hot [Unknown]
